FAERS Safety Report 6359462-5 (Version None)
Quarter: 2009Q3

REPORT INFORMATION
  Report Type: 
  Country: None (occurrence: None)
  Receive Date: 20090917
  Receipt Date: 20090914
  Transmission Date: 20100115
  Serious: Yes (Death, Other)
  Sender: FDA-Public Use
  Company Number: JP-BAYER-200911810BYL

PATIENT
  Age: 56 Year
  Sex: Male
  Weight: 52 kg

DRUGS (15)
  1. FLUDARA [Suspect]
     Indication: ACUTE MYELOID LEUKAEMIA
     Dosage: TOTAL DAILY DOSE: 50 MG  UNIT DOSE: 50 MG
     Route: 042
     Dates: start: 20090122, end: 20090126
  2. ALKERAN [Concomitant]
     Indication: ACUTE MYELOID LEUKAEMIA
     Dosage: AS USED: 65 MG
     Route: 042
     Dates: start: 20090126, end: 20090126
  3. ALKERAN [Concomitant]
     Dosage: AS USED: 65 MG
     Route: 042
     Dates: start: 20090122, end: 20090123
  4. CYLOCIDE [Concomitant]
     Indication: ACUTE MYELOID LEUKAEMIA
     Dosage: AS USED: 1600 MG
     Route: 041
     Dates: start: 20090119, end: 20090122
  5. CELLCEPT [Concomitant]
     Dosage: TOTAL DAILY DOSE: 2000 MG  UNIT DOSE: 250 MG
     Route: 048
     Dates: start: 20090128, end: 20090129
  6. CELLCEPT [Concomitant]
     Dosage: TOTAL DAILY DOSE: 2000 MG  UNIT DOSE: 250 MG
     Route: 048
     Dates: start: 20090218, end: 20090226
  7. PROGRAF [Concomitant]
     Dosage: AS USED: 0.3 ML
     Route: 041
     Dates: start: 20090127, end: 20090128
  8. PROGRAF [Concomitant]
     Dosage: TOTAL DAILY DOSE: 0.4 MG
     Route: 048
     Dates: start: 20090302, end: 20090303
  9. PROGRAF [Concomitant]
     Dosage: TOTAL DAILY DOSE: 2 MG
     Route: 048
     Dates: start: 20090228, end: 20090305
  10. PROGRAF [Concomitant]
     Dosage: AS USED: 0.8-0.4 MG
     Route: 048
     Dates: start: 20090305, end: 20090322
  11. PROGRAF [Concomitant]
     Dosage: TOTAL DAILY DOSE: 2 MG
     Route: 048
     Dates: start: 20090316, end: 20090326
  12. PROGRAF [Concomitant]
     Dosage: AS USED: 0.32-0.2 ML
     Route: 041
     Dates: start: 20090218, end: 20090227
  13. CONCENTRATED RED CELLS [Concomitant]
     Indication: PACKED RED BLOOD CELL TRANSFUSION
     Route: 042
     Dates: start: 20090117, end: 20090427
  14. PLATELETS [Concomitant]
     Indication: PLATELET TRANSFUSION
     Route: 042
     Dates: start: 20090117, end: 20090425
  15. FRESH FROZEN PLASMA [Concomitant]
     Indication: BLOOD PRODUCT TRANSFUSION
     Route: 042
     Dates: start: 20090420, end: 20090427

REACTIONS (2)
  - ACUTE GRAFT VERSUS HOST DISEASE IN INTESTINE [None]
  - ACUTE MYELOID LEUKAEMIA [None]
